FAERS Safety Report 11158260 (Version 7)
Quarter: 2015Q3

REPORT INFORMATION
  Report Type: Report from Study
  Country: AU (occurrence: AU)
  Receive Date: 20150603
  Receipt Date: 20150807
  Transmission Date: 20151125
  Serious: Yes (Hospitalization)
  Sender: FDA-Public Use
  Company Number: AU-BIOGENIDEC-2015BI066535

PATIENT
  Age: 51 Year
  Sex: Female

DRUGS (3)
  1. PLEGRIDY [Suspect]
     Active Substance: PEGINTERFERON BETA-1A
     Indication: MULTIPLE SCLEROSIS
     Route: 058
     Dates: start: 20150508
  2. PLEGRIDY [Suspect]
     Active Substance: PEGINTERFERON BETA-1A
     Indication: MULTIPLE SCLEROSIS
     Route: 058
  3. PLEGRIDY [Suspect]
     Active Substance: PEGINTERFERON BETA-1A
     Indication: MULTIPLE SCLEROSIS
     Route: 058
     Dates: start: 20150424, end: 20150508

REACTIONS (20)
  - Blood urine present [Not Recovered/Not Resolved]
  - Injection site erythema [Unknown]
  - Oropharyngeal pain [Unknown]
  - Muscle spasms [Not Recovered/Not Resolved]
  - Syncope [Unknown]
  - Speech rehabilitation [Unknown]
  - Fatigue [Not Recovered/Not Resolved]
  - Neck pain [Not Recovered/Not Resolved]
  - Musculoskeletal pain [Not Recovered/Not Resolved]
  - Head injury [Unknown]
  - Fall [Recovered/Resolved]
  - Renal pain [Unknown]
  - Body temperature increased [Unknown]
  - Injection site reaction [Not Recovered/Not Resolved]
  - Headache [Recovered/Resolved]
  - Chills [Unknown]
  - Vomiting [Not Recovered/Not Resolved]
  - Tremor [Unknown]
  - Injection site pain [Not Recovered/Not Resolved]
  - Nausea [Not Recovered/Not Resolved]

NARRATIVE: CASE EVENT DATE: 20150424
